FAERS Safety Report 9135283 (Version 1)
Quarter: 2013Q1

REPORT INFORMATION
  Report Type: Spontaneous
  Country: US (occurrence: US)
  Receive Date: 20130304
  Receipt Date: 20130304
  Transmission Date: 20140127
  Serious: No
  Sender: FDA-Public Use
  Company Number: US-ENDO PHARMACEUTICALS INC.-ENDC20110001

PATIENT
  Age: 55 Year
  Sex: Female

DRUGS (1)
  1. ENDOCET [Suspect]
     Indication: PRODUCT USED FOR UNKNOWN INDICATION
     Dosage: 30/1300
     Route: 048

REACTIONS (1)
  - Drug screen negative [Unknown]
